FAERS Safety Report 9161032 (Version 1)
Quarter: 2013Q1

REPORT INFORMATION
  Report Type: Spontaneous
  Country: ES (occurrence: ES)
  Receive Date: 20130313
  Receipt Date: 20130313
  Transmission Date: 20140127
  Serious: Yes (Hospitalization, Other)
  Sender: FDA-Public Use
  Company Number: ES-CUBIST PHARMACEUTICAL, INC.-2013CBST000179

PATIENT
  Age: 17 Year
  Sex: Male

DRUGS (5)
  1. CUBICIN [Suspect]
     Indication: STAPHYLOCOCCAL BACTERAEMIA
     Dosage: 600 MG, QD
     Route: 042
     Dates: start: 20130123, end: 20130201
  2. MEROPEN [Suspect]
     Indication: STAPHYLOCOCCAL BACTERAEMIA
     Dosage: 2 G, QD
     Route: 042
     Dates: start: 20130123, end: 20130201
  3. OMEPRAZOL [Suspect]
     Indication: PRODUCT USED FOR UNKNOWN INDICATION
     Dosage: 4 MG, QD
     Route: 043
     Dates: start: 20130125, end: 20130128
  4. TRAMADOL [Suspect]
     Indication: PRODUCT USED FOR UNKNOWN INDICATION
     Dosage: 300 ML, QD
     Route: 042
     Dates: start: 20130123, end: 20130203
  5. NOLOTIL /SPA/ [Suspect]
     Indication: PRODUCT USED FOR UNKNOWN INDICATION
     Dosage: 8 G, QD
     Route: 042

REACTIONS (4)
  - Muscle injury [Unknown]
  - Pruritus [Recovered/Resolved]
  - Rash generalised [Recovered/Resolved]
  - Blood creatine phosphokinase increased [None]
